FAERS Safety Report 6011095-6 (Version None)
Quarter: 2008Q4

REPORT INFORMATION
  Report Type: 
  Country: None (occurrence: None)
  Receive Date: 20081218
  Receipt Date: 20081203
  Transmission Date: 20090506
  Serious: Yes (Other)
  Sender: FDA-Public Use
  Company Number: US-GENENTECH-273379

PATIENT

DRUGS (2)
  1. BEVACIZUMAB [Suspect]
     Indication: METASTATIC MALIGNANT MELANOMA
     Dosage: 15 MG/KG, Q14D
     Route: 042
     Dates: start: 20080205
  2. INTERFERON ALFA-2B [Suspect]
     Indication: METASTATIC MALIGNANT MELANOMA
     Dosage: 10 MIU/M2, UNK
     Route: 042
     Dates: start: 20080205

REACTIONS (1)
  - LYMPHOPENIA [None]
